FAERS Safety Report 7153909-2 (Version None)
Quarter: 2010Q4

REPORT INFORMATION
  Report Type: 
  Country: None (occurrence: None)
  Receive Date: 20101124
  Receipt Date: 20101111
  Transmission Date: 20110411
  Serious: Yes (Other)
  Sender: FDA-Public Use
  Company Number: 2010005015

PATIENT
  Age: 50 Year
  Sex: Female

DRUGS (7)
  1. TARCEVA [Suspect]
     Indication: PANCREATIC CARCINOMA
     Dosage: 100 MG, 1 IN 1 D, ORAL
     Route: 048
     Dates: start: 20100823, end: 20100901
  2. XELODA [Suspect]
     Indication: PANCREATIC CARCINOMA
     Dosage: 1500 MG, ORAL
     Route: 048
     Dates: start: 20101103
  3. GEMCITBINE (GEMCITABINE) [Concomitant]
  4. OXALIPLATIN [Concomitant]
  5. ASPIRIN [Concomitant]
  6. OMEPRAZOLE [Concomitant]
  7. FENTANYL [Concomitant]

REACTIONS (11)
  - ABDOMINAL PAIN UPPER [None]
  - CATHETER SITE ERYTHEMA [None]
  - CHOLECYSTITIS [None]
  - CONSTIPATION [None]
  - FATIGUE [None]
  - HEADACHE [None]
  - ILEUS [None]
  - MALIGNANT NEOPLASM PROGRESSION [None]
  - NAUSEA [None]
  - PANCREATIC CARCINOMA [None]
  - PYREXIA [None]
